FAERS Safety Report 17063114 (Version 4)
Quarter: 2019Q4

REPORT INFORMATION
  Report Type: Report from Study
  Country: GB (occurrence: GB)
  Receive Date: 20191122
  Receipt Date: 20191231
  Transmission Date: 20200122
  Serious: Yes (Hospitalization)
  Sender: FDA-Public Use
  Company Number: GB-ROCHE-2467868

PATIENT
  Age: 69 Year
  Sex: Female
  Weight: 129.9 kg

DRUGS (3)
  1. ATEZOLIZUMAB. [Suspect]
     Active Substance: ATEZOLIZUMAB
     Indication: FALLOPIAN TUBE CANCER
     Dosage: DATE OF MOST RECENT DOSE OF ATEZOLIZUMAB PRIOR TO SERIOUS ADVERSE EVENT ONSET  29/OCT/2019 (1200 MG)
     Route: 042
     Dates: start: 20191029
  2. BEVACIZUMAB. [Suspect]
     Active Substance: BEVACIZUMAB
     Indication: FALLOPIAN TUBE CANCER
     Dosage: DATE OF MOST RECENT DOSE OF BEVACIZUMAB PRIOR TO SERIOUS ADVERSE EVENT ONSET  29/OCT/2019 (1900 MG)
     Route: 042
     Dates: start: 20191029
  3. BLINDED ASPIRIN [ACETYLSALICYLIC ACID] [Suspect]
     Active Substance: ASPIRIN
     Indication: FALLOPIAN TUBE CANCER
     Dosage: DATE OF MOST RECENT DOSE OF BLINDED ACETYLSALICYLIC ACID PRIOR TO SERIOUS ADVERSE EVENT ONSET 04/NOV
     Route: 048
     Dates: start: 20191029

REACTIONS (5)
  - Pyrexia [Unknown]
  - Cytokine release syndrome [Recovering/Resolving]
  - Cardiac failure [Recovering/Resolving]
  - Atrial fibrillation [Recovering/Resolving]
  - Pleuritic pain [Unknown]

NARRATIVE: CASE EVENT DATE: 20191104
